FAERS Safety Report 17406116 (Version 1)
Quarter: 2020Q1

REPORT INFORMATION
  Report Type: Spontaneous
  Country: US (occurrence: US)
  Receive Date: 20200212
  Receipt Date: 20200212
  Transmission Date: 20200409
  Serious: Yes (Life-Threatening, Hospitalization)
  Sender: FDA-Public Use
  Company Number: US-EMCURE PHARMACEUTICALS LTD-2020-EPL-0137

PATIENT
  Age: 51 Year
  Sex: Male

DRUGS (12)
  1. TIGECYCLINE. [Concomitant]
     Active Substance: TIGECYCLINE
     Indication: PROTEUS TEST POSITIVE
  2. DORIPENEM. [Concomitant]
     Active Substance: DORIPENEM
     Indication: PROTEUS TEST POSITIVE
  3. COLISTIMETHATE SODIUM. [Suspect]
     Active Substance: COLISTIMETHATE SODIUM
     Indication: PNEUMONIA STAPHYLOCOCCAL
  4. COLISTIMETHATE SODIUM. [Suspect]
     Active Substance: COLISTIMETHATE SODIUM
     Indication: ACINETOBACTER INFECTION
  5. TIGECYCLINE. [Concomitant]
     Active Substance: TIGECYCLINE
     Indication: PNEUMONIA
     Dosage: 50 MILLIGRAM, BID
     Route: 042
  6. TIGECYCLINE. [Concomitant]
     Active Substance: TIGECYCLINE
     Indication: ACINETOBACTER INFECTION
  7. COLISTIMETHATE SODIUM. [Suspect]
     Active Substance: COLISTIMETHATE SODIUM
     Indication: PNEUMONIA
     Dosage: 275 MILLIGRAM, BID
     Route: 042
  8. COLISTIMETHATE SODIUM. [Suspect]
     Active Substance: COLISTIMETHATE SODIUM
     Indication: PROTEUS TEST POSITIVE
  9. TIGECYCLINE. [Concomitant]
     Active Substance: TIGECYCLINE
     Indication: STAPHYLOCOCCAL INFECTION
  10. DORIPENEM. [Concomitant]
     Active Substance: DORIPENEM
     Indication: STAPHYLOCOCCAL INFECTION
  11. DORIPENEM. [Concomitant]
     Active Substance: DORIPENEM
     Indication: PNEUMONIA
     Dosage: 500 MILLIGRAM, TID
     Route: 042
  12. DORIPENEM. [Concomitant]
     Active Substance: DORIPENEM
     Indication: ACINETOBACTER INFECTION

REACTIONS (5)
  - Toxic encephalopathy [Recovered/Resolved]
  - Toxicity to various agents [Recovered/Resolved]
  - Neuromuscular blockade [Recovered/Resolved]
  - Renal tubular necrosis [Recovered/Resolved]
  - Apnoea [Recovered/Resolved]
